FAERS Safety Report 7522298-3 (Version None)
Quarter: 2011Q2

REPORT INFORMATION
  Report Type: 
  Country: None (occurrence: None)
  Receive Date: 20110512
  Receipt Date: 20110504
  Transmission Date: 20111010
  Serious: Yes (Other)
  Sender: FDA-Public Use
  Company Number: AEUSA201100027

PATIENT
  Age: 15 Year
  Sex: Female

DRUGS (3)
  1. THROMBATE III [Suspect]
     Indication: ANTITHROMBIN III DEFICIENCY
     Dosage: IV
     Route: 042
     Dates: start: 20101004, end: 20101005
  2. OXYTOCIN [Concomitant]
  3. LEVENOX /01708202/ [Concomitant]

REACTIONS (6)
  - HAEMOGLOBIN DECREASED [None]
  - PREGNANCY [None]
  - POSTPARTUM HAEMORRHAGE [None]
  - DRUG EXPOSURE DURING PREGNANCY [None]
  - HAEMATOCRIT DECREASED [None]
  - UTERINE ATONY [None]
